FAERS Safety Report 9413388 (Version 1)
Quarter: 2013Q3

REPORT INFORMATION
  Report Type: Spontaneous
  Country: GB (occurrence: None)
  Receive Date: 20130717
  Receipt Date: 20130717
  Transmission Date: 20140515
  Serious: Yes (Other)
  Sender: FDA-Public Use
  Company Number: SYM-2013-05389

PATIENT
  Age: 62 Year
  Sex: Male

DRUGS (1)
  1. ALDARA [Suspect]
     Indication: PRODUCT USED FOR UNKNOWN INDICATION
     Dosage: FIVE TIMES A WEEK, TOPICAL

REACTIONS (1)
  - Basal cell carcinoma [None]
